FAERS Safety Report 7867810-X (Version None)
Quarter: 2011Q4

REPORT INFORMATION
  Report Type: 
  Country: None (occurrence: None)
  Receive Date: 20111028
  Receipt Date: 20111019
  Transmission Date: 20120403
  Serious: Yes (Other)
  Sender: FDA-Public Use
  Company Number: US-ASTRAZENECA-2011SE33940

PATIENT
  Age: 44 Year
  Sex: Female

DRUGS (1)
  1. NEXIUM [Suspect]
     Route: 048

REACTIONS (6)
  - MYOCARDIAL INFARCTION [None]
  - PANCREATIC DISORDER [None]
  - ABDOMINAL PAIN UPPER [None]
  - VOMITING [None]
  - DRUG DOSE OMISSION [None]
  - DYSPEPSIA [None]
